FAERS Safety Report 6846892-8 (Version None)
Quarter: 2010Q3

REPORT INFORMATION
  Report Type: 
  Country: None (occurrence: None)
  Receive Date: 20100715
  Receipt Date: 20090416
  Transmission Date: 20110219
  Serious: No
  Sender: FDA-Public Use
  Company Number: US-PFIZER INC-2007079843

PATIENT
  Sex: Female
  Weight: 54.5 kg

DRUGS (6)
  1. CHANTIX [Suspect]
     Indication: SMOKING CESSATION THERAPY
     Dosage: 0.5 MG, 2X/DAY
     Route: 048
     Dates: start: 20070917, end: 20070924
  2. MULTI-VITAMINS [Concomitant]
     Dosage: UNK
  3. VITAMIN D [Concomitant]
     Dosage: UNK
  4. ZOLPIDEM TARTRATE [Concomitant]
     Dosage: UNK
  5. PREVACID [Concomitant]
     Dosage: UNK
  6. SIMVASTATIN [Concomitant]
     Dosage: UNK

REACTIONS (3)
  - DIARRHOEA [None]
  - INCORRECT DOSE ADMINISTERED [None]
  - NAUSEA [None]
